FAERS Safety Report 5289157-0 (Version None)
Quarter: 2007Q1

REPORT INFORMATION
  Report Type: 
  Country: None (occurrence: None)
  Receive Date: 20070124
  Receipt Date: 20060828
  Transmission Date: 20070707
  Serious: Yes (Hospitalization)
  Sender: FDA-Public Use
  Company Number: E2020-00394-SPO-US

PATIENT
  Age: 67 Year
  Sex: Male

DRUGS (14)
  1. ARICEPT [Suspect]
     Indication: VASCULAR DEMENTIA
     Dosage: SEE IMAGE
     Route: 048
     Dates: start: 20030801, end: 20030101
  2. ARICEPT [Suspect]
     Indication: VASCULAR DEMENTIA
     Dosage: SEE IMAGE
     Route: 048
     Dates: start: 20030101
  3. PAXIL [Concomitant]
  4. CRESTOR (CREMOPHOREL) [Concomitant]
  5. RANITIDINE [Concomitant]
  6. VITAMIN E [Concomitant]
  7. METFORMIN HCL [Concomitant]
  8. GLYBURIDE [Concomitant]
  9. FLOMAX [Concomitant]
  10. OXYBUTYNIN CHLORIDE [Concomitant]
  11. ASPIRIN [Concomitant]
  12. GABAPENTIN [Concomitant]
  13. GEMFIBROZIL [Concomitant]
  14. AGGRENOX [Concomitant]

REACTIONS (1)
  - CEREBROVASCULAR ACCIDENT [None]
